FAERS Safety Report 9635721 (Version 2)
Quarter: 2013Q4

REPORT INFORMATION
  Report Type: Report from Study
  Country: US (occurrence: US)
  Receive Date: 20131021
  Receipt Date: 20131106
  Transmission Date: 20140711
  Serious: Yes (Hospitalization)
  Sender: FDA-Public Use
  Company Number: US-VIIV HEALTHCARE LIMITED-B0932303A

PATIENT
  Age: 49 Year
  Sex: Female
  Weight: 77.3 kg

DRUGS (26)
  1. MARAVIROC [Suspect]
     Indication: HIV INFECTION
     Dosage: 1200MG TWICE PER DAY
     Route: 048
     Dates: start: 20100901
  2. TRUVADA [Suspect]
     Indication: HIV INFECTION
     Dosage: 500MG TWICE PER DAY
     Dates: start: 20050424, end: 20130828
  3. RALTEGRAVIR [Suspect]
     Indication: HIV INFECTION
     Dosage: 800MG TWICE PER DAY
     Dates: start: 20100901, end: 20130828
  4. ETRAVIRINE [Concomitant]
     Indication: HIV INFECTION
     Dosage: 400MG TWICE PER DAY
     Dates: start: 20100901, end: 20130828
  5. FUROSEMIDE [Concomitant]
     Indication: OEDEMA
     Route: 048
     Dates: start: 201006, end: 20130828
  6. VICODIN [Concomitant]
     Indication: PAIN
     Route: 048
     Dates: start: 1995, end: 20130828
  7. NORVASC [Concomitant]
     Indication: HYPERTENSION
     Route: 048
     Dates: start: 201005
  8. PRILOSEC [Concomitant]
     Indication: GASTROOESOPHAGEAL REFLUX DISEASE
     Route: 048
     Dates: start: 200503, end: 20130828
  9. IMITREX [Concomitant]
     Indication: MIGRAINE
     Route: 048
     Dates: start: 2005, end: 20130828
  10. FLEXERIL [Concomitant]
     Indication: BACK PAIN
     Route: 048
     Dates: start: 2005, end: 20130828
  11. PROCHLORPERAZINE [Concomitant]
     Indication: ANXIETY
     Route: 048
     Dates: start: 1995
  12. LIDOCAINE [Concomitant]
     Indication: PAIN
     Route: 061
     Dates: start: 2009, end: 20130828
  13. ALBUTEROL [Concomitant]
     Indication: ASTHMA
     Route: 048
     Dates: start: 2005
  14. IBUPROFEN [Concomitant]
     Indication: PAIN
     Route: 048
     Dates: start: 1990, end: 20130828
  15. ASPIRIN [Concomitant]
     Indication: THROMBOSIS PROPHYLAXIS
     Route: 048
     Dates: start: 2003, end: 20130828
  16. PERPHENAZINE [Concomitant]
     Indication: BIPOLAR DISORDER
     Route: 048
     Dates: start: 1992
  17. TRAZODONE [Concomitant]
     Indication: BIPOLAR DISORDER
     Route: 048
     Dates: start: 1992
  18. NASONEX [Concomitant]
     Indication: NASAL CONGESTION
     Route: 048
     Dates: start: 20080324, end: 20130828
  19. ATIVAN [Concomitant]
     Indication: BIPOLAR DISORDER
     Dates: start: 2000, end: 20130828
  20. TRAMADOL [Concomitant]
     Indication: PAIN
     Route: 048
     Dates: start: 20110311, end: 20130828
  21. MUPIROCIN [Concomitant]
     Indication: SKIN INFECTION
     Route: 061
     Dates: start: 20110301, end: 20130828
  22. ESTROGEN [Concomitant]
     Indication: MENOPAUSAL SYMPTOMS
     Route: 067
     Dates: start: 20110511, end: 20130828
  23. PANTOPRAZOLE [Concomitant]
     Indication: GASTROOESOPHAGEAL REFLUX DISEASE
     Route: 048
     Dates: start: 20110819, end: 20130828
  24. SUBOXONE [Concomitant]
     Indication: DEPENDENCE
     Route: 048
     Dates: start: 20111012, end: 20130828
  25. BISACODYL [Concomitant]
     Indication: CONSTIPATION
     Route: 048
     Dates: start: 20120107, end: 20130828
  26. PROTONIX [Concomitant]
     Indication: GASTROOESOPHAGEAL REFLUX DISEASE

REACTIONS (1)
  - Lactic acidosis [Recovered/Resolved]
